FAERS Safety Report 8442741 (Version 3)
Quarter: 2013Q2

REPORT INFORMATION
  Report Type: Report from Study
  Country: DE (occurrence: DE)
  Receive Date: 20120306
  Receipt Date: 20130409
  Transmission Date: 20140414
  Serious: Yes (Other)
  Sender: FDA-Public Use
  Company Number: DE-CELGENEUS-062-C5013-12022626

PATIENT
  Age: 57 Year
  Sex: Male
  Weight: 90 kg

DRUGS (1)
  1. CC-5013 [Suspect]
     Indication: CHRONIC LYMPHOCYTIC LEUKAEMIA
     Dosage: 5 MILLIGRAM
     Route: 048
     Dates: start: 20120110, end: 20120123

REACTIONS (1)
  - Lung adenocarcinoma [Not Recovered/Not Resolved]
